FAERS Safety Report 10789469 (Version 1)
Quarter: 2015Q1

REPORT INFORMATION
  Report Type: Spontaneous
  Country: US (occurrence: None)
  Receive Date: 20150211
  Receipt Date: 20150211
  Transmission Date: 20150721
  Serious: Yes (Other)
  Sender: FDA-Public Use
  Company Number: None

PATIENT
  Age: 63 Year
  Sex: Male

DRUGS (12)
  1. ONDANSETRON [Concomitant]
     Active Substance: ONDANSETRON
  2. LORATADINE. [Concomitant]
     Active Substance: LORATADINE
  3. AZELASTINE [Concomitant]
     Active Substance: AZELASTINE
  4. SPRYCEL [Concomitant]
     Active Substance: DASATINIB
  5. TASIGNA [Concomitant]
     Active Substance: NILOTINIB
  6. FUROSEMIDE. [Concomitant]
     Active Substance: FUROSEMIDE
  7. MUCINEX [Concomitant]
     Active Substance: GUAIFENESIN
  8. AMOXICLAV [Concomitant]
     Active Substance: AMOXICILLIN\CLAVULANIC ACID
  9. FLOVENT HFA [Concomitant]
     Active Substance: FLUTICASONE PROPIONATE
  10. PREDNISONE. [Concomitant]
     Active Substance: PREDNISONE
  11. SPRYCEL [Suspect]
     Active Substance: DASATINIB
     Indication: CHRONIC MYELOID LEUKAEMIA
     Route: 048
     Dates: start: 201408
  12. PATANASE [Concomitant]
     Active Substance: OLOPATADINE HYDROCHLORIDE

REACTIONS (2)
  - Pleural effusion [None]
  - Drug dose omission [None]

NARRATIVE: CASE EVENT DATE: 20150114
